FAERS Safety Report 23033723 (Version 2)
Quarter: 2024Q1

REPORT INFORMATION
  Report Type: Report from Study
  Country: PH (occurrence: PH)
  Receive Date: 20231005
  Receipt Date: 20240115
  Transmission Date: 20240410
  Serious: Yes (Hospitalization, Other)
  Sender: FDA-Public Use
  Company Number: PH-OTSUKA-2023_025700

PATIENT
  Age: 32 Year
  Sex: Female

DRUGS (4)
  1. TOLVAPTAN [Suspect]
     Active Substance: TOLVAPTAN
     Indication: Swelling
     Dosage: 0.5 DF (HALF TABLET), QD
     Route: 048
  2. TOLVAPTAN [Suspect]
     Active Substance: TOLVAPTAN
     Indication: Cardiac disorder
  3. TOLVAPTAN [Suspect]
     Active Substance: TOLVAPTAN
     Indication: Oedema
  4. TOLVAPTAN [Suspect]
     Active Substance: TOLVAPTAN
     Indication: Nephropathy

REACTIONS (5)
  - Cellulitis [Recovered/Resolved]
  - Transfusion [Unknown]
  - Swelling [Unknown]
  - Product use in unapproved indication [Unknown]
  - Wrong technique in product usage process [Unknown]

NARRATIVE: CASE EVENT DATE: 20230801
